FAERS Safety Report 8339790-4 (Version None)
Quarter: 2012Q2

REPORT INFORMATION
  Report Type: 
  Country: None (occurrence: None)
  Receive Date: 20120507
  Receipt Date: 20120503
  Transmission Date: 20120825
  Serious: Yes (Death)
  Sender: FDA-Public Use
  Company Number: CA-ABBOTT-12P-028-0919859-00

PATIENT
  Sex: Male

DRUGS (2)
  1. KALETRA [Suspect]
     Indication: HIV INFECTION
     Dosage: 200 /50MG
     Route: 048
     Dates: start: 20050101, end: 20110101
  2. KALETRA [Suspect]
     Indication: ANTIRETROVIRAL THERAPY

REACTIONS (2)
  - METASTATIC NEOPLASM [None]
  - NEOPLASM MALIGNANT [None]
